FAERS Safety Report 5222331-8 (Version None)
Quarter: 2007Q1

REPORT INFORMATION
  Report Type: 
  Country: None (occurrence: None)
  Receive Date: 20070124
  Receipt Date: 20070116
  Transmission Date: 20070707
  Serious: Yes (Death, Hospitalization, Disabling)
  Sender: FDA-Public Use
  Company Number: 2006US002072

PATIENT
  Age: 59 Year
  Sex: Male

DRUGS (12)
  1. PROGRAF [Suspect]
     Indication: PROPHYLAXIS AGAINST TRANSPLANT REJECTION
     Dosage: 4 MG, BID, ORAL
     Route: 048
     Dates: start: 20060702, end: 20060925
  2. MYCOPHENOLATE MOFETIL [Suspect]
     Indication: PROPHYLAXIS AGAINST TRANSPLANT REJECTION
     Dosage: 1000 MG, BID, ORAL
     Route: 048
     Dates: start: 20060822, end: 20061005
  3. PREDNISONE TAB [Suspect]
     Indication: PROPHYLAXIS AGAINST TRANSPLANT REJECTION
     Dosage: 5 MG,BID, ORAL
     Route: 048
     Dates: start: 20060702, end: 20061005
  4. FLUNCONAZOLE (FLUCONAZOLE) [Concomitant]
  5. VALCYTE (VALGANCICLOVIR HYDROCLORIDE) [Concomitant]
  6. PROTONIX [Concomitant]
  7. OSCAL [Concomitant]
  8. METOPROLOL (METOPORLOL TARTRATE) [Concomitant]
  9. MAGNESIUM OXIDE (MAGNESIUM OXIDE) [Concomitant]
  10. ASPIRIN [Concomitant]
  11. PLAVIX [Concomitant]
  12. PROLOSEC [Concomitant]

REACTIONS (24)
  - ADENOCARCINOMA [None]
  - ANAEMIA [None]
  - ANGIOPATHY [None]
  - BACK PAIN [None]
  - BILE DUCT CANCER [None]
  - BILIARY TRACT DISORDER [None]
  - BLOOD ALKALINE PHOSPHATASE INCREASED [None]
  - BONE LESION [None]
  - COMPRESSION FRACTURE [None]
  - DEHYDRATION [None]
  - FAILURE TO THRIVE [None]
  - GASTROINTESTINAL HAEMORRHAGE [None]
  - HEART RATE INCREASED [None]
  - HEPATIC ARTERY STENOSIS [None]
  - HEPATIC NEOPLASM MALIGNANT [None]
  - METASTASIS [None]
  - MUSCULOSKELETAL PAIN [None]
  - OESOPHAGEAL CANCER METASTATIC [None]
  - OSTEOPENIA [None]
  - POST PROCEDURAL COMPLICATION [None]
  - PYREXIA [None]
  - REFUSAL OF TREATMENT BY RELATIVE [None]
  - RESPIRATORY DISTRESS [None]
  - SPINAL OSTEOARTHRITIS [None]
